FAERS Safety Report 20558647 (Version 8)
Quarter: 2022Q3

REPORT INFORMATION
  Report Type: Report from Study
  Country: US (occurrence: US)
  Receive Date: 20220307
  Receipt Date: 20220906
  Transmission Date: 20221027
  Serious: Yes (Hospitalization, Other)
  Sender: FDA-Public Use
  Company Number: US-NOVARTISPH-NVSC2022US050363

PATIENT
  Age: 5 Year
  Sex: Female
  Weight: 13.6 kg

DRUGS (20)
  1. TOPOTECAN [Suspect]
     Active Substance: TOPOTECAN HYDROCHLORIDE
     Indication: Neuroblastoma
     Dosage: 0.46 MG, QD (D3-7 EACH CYCLE)
     Route: 033
     Dates: start: 20220131
  2. TOPOTECAN [Suspect]
     Active Substance: TOPOTECAN HYDROCHLORIDE
     Dosage: 0.46 MG, QD (D3-7 EACH CYCLE)
     Route: 033
     Dates: start: 20220202, end: 20220206
  3. TOPOTECAN [Suspect]
     Active Substance: TOPOTECAN HYDROCHLORIDE
     Dosage: 0.445 MG, QD (1 TIME DAILY, D1-D4OF EACH CYCLE)
     Route: 048
     Dates: start: 20220202
  4. VENETOCLAX [Suspect]
     Active Substance: VENETOCLAX
     Indication: Neuroblastoma
     Dosage: 120 MG, QD  (DAY 1-10 OF EACH 28 DAY CYCLE)
     Route: 045
     Dates: start: 20220131, end: 20220131
  5. VENETOCLAX [Suspect]
     Active Substance: VENETOCLAX
     Dosage: 250 MG, QD (DAY 1-10 OF EACH 28 DAY CYCLE)
     Route: 045
     Dates: start: 20220201
  6. CYCLOPHOSPHAMIDE [Suspect]
     Active Substance: CYCLOPHOSPHAMIDE
     Indication: Neuroblastoma
     Dosage: 152.4 MG, QD (D3-7 EACH CYCLE)
     Route: 042
     Dates: start: 20220131
  7. CYCLOPHOSPHAMIDE [Suspect]
     Active Substance: CYCLOPHOSPHAMIDE
     Dosage: 152.4 MG, QD (D3-7 EACH CYCLE)
     Route: 042
     Dates: start: 20220202, end: 20220208
  8. CYCLOPHOSPHAMIDE [Suspect]
     Active Substance: CYCLOPHOSPHAMIDE
     Dosage: 147.6 MG, QD (DAY 1-DAY 4 EVERY 28 CYCLE)
     Route: 048
     Dates: start: 20220202, end: 20220206
  9. CYCLOPHOSPHAMIDE [Suspect]
     Active Substance: CYCLOPHOSPHAMIDE
     Dosage: 152.4 MG, QD (D3-7 EACH CYCLE)
     Route: 042
     Dates: start: 20220202, end: 20220311
  10. LEVOTHYROXINE [Concomitant]
     Active Substance: LEVOTHYROXINE
     Indication: Hypothyroidism
     Dosage: UNK
     Route: 048
  11. HYDROCORTISONE [Concomitant]
     Active Substance: HYDROCORTISONE
     Indication: Optic nerve disorder
     Dosage: UNK
     Route: 042
  12. SALINE [Concomitant]
     Active Substance: SODIUM CHLORIDE
     Indication: Product used for unknown indication
     Dosage: 0.9 % (BOLUS, HYDRATION)
     Route: 042
     Dates: start: 20220202
  13. ZOFRAN [Concomitant]
     Active Substance: ONDANSETRON HYDROCHLORIDE
     Indication: Prophylaxis of nausea and vomiting
     Dosage: 2 MG
     Route: 042
     Dates: start: 20220204
  14. ZOFRAN [Concomitant]
     Active Substance: ONDANSETRON HYDROCHLORIDE
     Dosage: 2 MG
     Route: 042
     Dates: start: 20220308
  15. CHOLECALCIFEROL [Concomitant]
     Active Substance: CHOLECALCIFEROL
     Indication: Supplementation therapy
     Dosage: UNK
     Route: 048
     Dates: start: 20220217
  16. SULFAMETHOXAZOLE [Concomitant]
     Active Substance: SULFAMETHOXAZOLE
     Indication: Infection prophylaxis
     Dosage: UNK (BID (SAT/SUN) (40 MG)
     Route: 048
     Dates: start: 20210913
  17. HEPARIN SODIUM [Concomitant]
     Active Substance: HEPARIN SODIUM
     Indication: Catheter management
     Dosage: UNK (10 UNITS AS REQUIRED)
     Route: 042
     Dates: start: 20220112
  18. FILGRASTIM [Concomitant]
     Active Substance: FILGRASTIM
     Indication: Myelosuppression
     Dosage: 69 MCG,1 IN 1 D
     Route: 042
     Dates: start: 20220604, end: 20220615
  19. LIDOCAINE [Concomitant]
     Active Substance: LIDOCAINE
     Indication: Investigation
     Dosage: 4 %
     Route: 061
     Dates: start: 20220213
  20. OXYCODONE [Concomitant]
     Active Substance: OXYCODONE
     Indication: Pain
     Dosage: UNK (Q6H PRN 1.5 MG)
     Route: 048
     Dates: start: 20220112

REACTIONS (13)
  - Febrile neutropenia [Recovered/Resolved]
  - Febrile neutropenia [Recovered/Resolved]
  - Anaemia [Recovered/Resolved]
  - Anaemia [Not Recovered/Not Resolved]
  - Epistaxis [Recovered/Resolved]
  - Rhinovirus infection [Not Recovered/Not Resolved]
  - Platelet count decreased [Not Recovered/Not Resolved]
  - Diarrhoea haemorrhagic [Unknown]
  - Alanine aminotransferase increased [Unknown]
  - Aspartate aminotransferase increased [Unknown]
  - Haemoglobin decreased [Unknown]
  - White blood cell count decreased [Unknown]
  - Pyrexia [Not Recovered/Not Resolved]

NARRATIVE: CASE EVENT DATE: 20220213
